FAERS Safety Report 18287839 (Version 28)
Quarter: 2025Q2

REPORT INFORMATION
  Report Type: Report from Study
  Country: US (occurrence: US)
  Receive Date: 20200921
  Receipt Date: 20250605
  Transmission Date: 20250717
  Serious: Yes (Other)
  Sender: TAKEDA
  Company Number: US-SHIRE-US202030609

PATIENT
  Age: 34 Year
  Sex: Female
  Weight: 91 kg

DRUGS (33)
  1. HUMAN IMMUNOGLOBULIN G [Suspect]
     Active Substance: HUMAN IMMUNOGLOBULIN G
     Indication: Primary immunodeficiency syndrome
     Dosage: 24 GRAM, Q2WEEKS
     Dates: start: 20150325
  2. HUMAN IMMUNOGLOBULIN G [Suspect]
     Active Substance: HUMAN IMMUNOGLOBULIN G
     Indication: IgG deficiency
  3. HUMAN IMMUNOGLOBULIN G [Suspect]
     Active Substance: HUMAN IMMUNOGLOBULIN G
     Indication: Immune system disorder
  4. HUMAN IMMUNOGLOBULIN G [Suspect]
     Active Substance: HUMAN IMMUNOGLOBULIN G
     Indication: Hypergammaglobulinaemia
     Dosage: 24 GRAM, Q2WEEKS
  5. HUMAN IMMUNOGLOBULIN G [Suspect]
     Active Substance: HUMAN IMMUNOGLOBULIN G
     Dosage: UNK UNK, Q3WEEKS
  6. WELLBUTRIN [Suspect]
     Active Substance: BUPROPION HYDROCHLORIDE
     Indication: Product used for unknown indication
  7. ACETAMINOPHEN [Concomitant]
     Active Substance: ACETAMINOPHEN
  8. OTEZLA [Concomitant]
     Active Substance: APREMILAST
  9. LIPITOR [Concomitant]
     Active Substance: ATORVASTATIN CALCIUM
  10. OLMESARTAN MEDOXOMIL [Concomitant]
     Active Substance: OLMESARTAN MEDOXOMIL
  11. LIDOCAINE [Concomitant]
     Active Substance: LIDOCAINE
  12. ETHINYL ESTRADIOL\NORETHINDRONE [Concomitant]
     Active Substance: ETHINYL ESTRADIOL\NORETHINDRONE
  13. METFORMIN HYDROCHLORIDE [Concomitant]
     Active Substance: METFORMIN HYDROCHLORIDE
  14. Essential [Concomitant]
  15. PLAQUENIL [Concomitant]
     Active Substance: HYDROXYCHLOROQUINE SULFATE
  16. DIPHENHYDRAMINE HYDROCHLORIDE [Concomitant]
     Active Substance: DIPHENHYDRAMINE HYDROCHLORIDE
  17. KLONOPIN [Concomitant]
     Active Substance: CLONAZEPAM
  18. VITAMIN D3 [Concomitant]
     Active Substance: CHOLECALCIFEROL
  19. LOSARTAN [Concomitant]
     Active Substance: LOSARTAN
  20. HYDROCHLOROTHIAZIDE [Concomitant]
     Active Substance: HYDROCHLOROTHIAZIDE
  21. LEXAPRO [Concomitant]
     Active Substance: ESCITALOPRAM OXALATE
  22. DIPHENHYDRAMINE [Concomitant]
     Active Substance: DIPHENHYDRAMINE
  23. EPINEPHRINE [Concomitant]
     Active Substance: EPINEPHRINE
  24. SPRINTEC [Concomitant]
     Active Substance: ETHINYL ESTRADIOL\NORGESTIMATE
  25. SUMATRIPTAN SUCCINATE [Concomitant]
     Active Substance: SUMATRIPTAN SUCCINATE
  26. ZANAFLEX [Concomitant]
     Active Substance: TIZANIDINE HYDROCHLORIDE
  27. DULERA [Concomitant]
     Active Substance: FORMOTEROL FUMARATE DIHYDRATE\MOMETASONE FUROATE
  28. VANCOMYCIN HYDROCHLORIDE [Concomitant]
     Active Substance: VANCOMYCIN HYDROCHLORIDE
  29. SUMATRIPTAN [Concomitant]
     Active Substance: SUMATRIPTAN
  30. MONONESSA [Concomitant]
     Active Substance: ETHINYL ESTRADIOL\NORGESTIMATE
  31. PLAQUENIL [Concomitant]
     Active Substance: HYDROXYCHLOROQUINE SULFATE
  32. LOSARTAN POTASSIUM [Concomitant]
     Active Substance: LOSARTAN POTASSIUM
  33. OXYCODONE AND ACETAMINOPHEN [Concomitant]
     Active Substance: ACETAMINOPHEN\OXYCODONE HYDROCHLORIDE

REACTIONS (35)
  - Clostridium difficile infection [Unknown]
  - Seizure [Unknown]
  - Staphylococcal skin infection [Recovered/Resolved]
  - COVID-19 [Recovered/Resolved]
  - Bacterial test positive [Unknown]
  - Full blood count increased [Unknown]
  - Thyroid mass [Unknown]
  - Urinary tract infection [Unknown]
  - Dermatitis contact [Unknown]
  - Gastroenteritis viral [Unknown]
  - Illness [Unknown]
  - Sinusitis [Unknown]
  - Multiple allergies [Unknown]
  - Drug hypersensitivity [Unknown]
  - Cellulitis [Unknown]
  - Product leakage [Unknown]
  - Syringe issue [Unknown]
  - Inappropriate schedule of product administration [Unknown]
  - Product dose omission issue [Unknown]
  - Pharyngitis streptococcal [Unknown]
  - Influenza [Unknown]
  - Wheezing [Unknown]
  - Rhinorrhoea [Unknown]
  - Infusion site haemorrhage [Unknown]
  - Muscle spasms [Unknown]
  - Malaise [Unknown]
  - Infusion site bruising [Unknown]
  - Pyrexia [Unknown]
  - Back pain [Unknown]
  - Pain [Unknown]
  - Infusion site swelling [Unknown]
  - Headache [Unknown]
  - Fatigue [Unknown]
  - Carpal tunnel syndrome [Recovering/Resolving]
  - Oropharyngeal pain [Unknown]

NARRATIVE: CASE EVENT DATE: 20210626
